FAERS Safety Report 6472797-0 (Version None)
Quarter: 2009Q4

REPORT INFORMATION
  Report Type: 
  Country: None (occurrence: None)
  Receive Date: 20091201
  Receipt Date: 20091117
  Transmission Date: 20100525
  Serious: Yes (Other)
  Sender: FDA-Public Use
  Company Number: 2009AP004617

PATIENT
  Age: 44 Year
  Sex: Male

DRUGS (2)
  1. TERBINAFINE HYDROCHLORIDE [Suspect]
     Indication: ONYCHOMYCOSIS
     Dosage: 250MG;PO
     Route: 048
     Dates: start: 20080115, end: 20080827
  2. FLUORESCITE [Concomitant]

REACTIONS (2)
  - PEYRONIE'S DISEASE [None]
  - TENOSYNOVITIS STENOSANS [None]
